FAERS Safety Report 5847171-8 (Version None)
Quarter: 2008Q3

REPORT INFORMATION
  Report Type: 
  Country: None (occurrence: None)
  Receive Date: 20080815
  Receipt Date: 20080807
  Transmission Date: 20090109
  Serious: Yes (Other)
  Sender: FDA-Public Use
  Company Number: PHHY2008FR17371

PATIENT
  Age: 20 Year
  Sex: Female
  Weight: 45 kg

DRUGS (6)
  1. EXJADE [Suspect]
     Indication: IRON OVERLOAD
     Dosage: 500 MG, QD
     Route: 048
     Dates: start: 20070101, end: 20070901
  2. EXJADE [Suspect]
     Dosage: 750 MG, QD
     Route: 048
     Dates: end: 20071001
  3. EXJADE [Suspect]
     Dosage: 1500 MG, QD
     Route: 048
     Dates: start: 20071001
  4. EXJADE [Suspect]
     Dosage: 1000 MG/DAY
     Route: 048
  5. CREON [Concomitant]
  6. BECILAN [Concomitant]

REACTIONS (6)
  - ABDOMINAL PAIN [None]
  - GASTRIC ULCER PERFORATION [None]
  - HELICOBACTER INFECTION [None]
  - PERITONITIS [None]
  - PROTEINURIA [None]
  - SURGERY [None]
